FAERS Safety Report 12620429 (Version 1)
Quarter: 2016Q3

REPORT INFORMATION
  Report Type: Report from Study
  Country: US (occurrence: US)
  Receive Date: 20160803
  Receipt Date: 20160803
  Transmission Date: 20161109
  Serious: Yes (Other)
  Sender: FDA-Public Use
  Company Number: US-AMGEN-USASL2016096847

PATIENT
  Age: 22 Year
  Sex: Female

DRUGS (1)
  1. ENBREL [Suspect]
     Active Substance: ETANERCEPT
     Indication: RHEUMATOID ARTHRITIS
     Dosage: UNK UNK, QWK
     Route: 065
     Dates: start: 20160702

REACTIONS (6)
  - Skin abrasion [Unknown]
  - Balance disorder [Unknown]
  - Wound abscess [Unknown]
  - Infection susceptibility increased [Unknown]
  - Fall [Unknown]
  - Wheelchair user [Unknown]

NARRATIVE: CASE EVENT DATE: 201607
